FAERS Safety Report 7539584-3 (Version None)
Quarter: 2011Q2

REPORT INFORMATION
  Report Type: 
  Country: None (occurrence: None)
  Receive Date: 20110610
  Receipt Date: 20091114
  Transmission Date: 20111010
  Serious: Yes (Hospitalization, Other)
  Sender: FDA-Public Use
  Company Number: US-BAYER-200939568NA

PATIENT
  Age: 54 Year
  Sex: Female
  Weight: 320 kg

DRUGS (21)
  1. TRIAMTERENE [Concomitant]
  2. NORCO [Concomitant]
  3. PRILOSEC [Concomitant]
     Dosage: 40 MG, QD
     Route: 048
  4. VANCOMYCIN [Concomitant]
     Dosage: 500 MG, UNK
     Dates: start: 20071010, end: 20071010
  5. TOPROL-XL [Concomitant]
     Dosage: 25 MG, QD
  6. ACETAMINOPHEN [Concomitant]
     Dosage: 650 MG EVERY 6 HOURS AS NEEDED
     Route: 048
     Dates: start: 20071008
  7. SOMA [Concomitant]
  8. TRASYLOL [Suspect]
     Indication: CORONARY ARTERY BYPASS
     Dosage: 200 ML
     Route: 042
     Dates: start: 20071010, end: 20071010
  9. PLAVIX [Concomitant]
     Dosage: 75 MG, QD
     Route: 048
     Dates: start: 20071008
  10. HYDROCHLOROTHIAZIDE [Concomitant]
     Dosage: 25 MG, QD
  11. HEPARIN [Concomitant]
     Dosage: 5,000 UNITS,IRRIGATION
     Dates: start: 20071010, end: 20071010
  12. ACETYLSALICYLIC ACID SRT [Concomitant]
     Dosage: 81 MG, UNK
     Route: 048
  13. HEPARIN [Concomitant]
     Dosage: 25,000 UNITS
     Route: 042
     Dates: start: 20071008
  14. PREDNISONE [Concomitant]
     Dosage: 5 MG TABLETS;TAPERING DOSE
     Route: 048
     Dates: start: 20070917, end: 20070930
  15. DYAZIDE [Concomitant]
     Dosage: ONE DAILY
     Route: 048
     Dates: start: 20071009
  16. VANCOMYCIN [Concomitant]
     Dosage: 1 GRAM ON CALL TO THE OPERATING ROOM
     Route: 042
     Dates: start: 20071010, end: 20071010
  17. PROTONIX [Concomitant]
     Dosage: 40 MG, UNK
     Route: 048
  18. VERAPAMIL [Concomitant]
     Dosage: 240 MG DAILY AT NIGHT
     Route: 048
  19. LASIX [Concomitant]
     Dosage: 20 MG, UNK
     Route: 042
     Dates: start: 20071010, end: 20071010
  20. CARISOPRODOL [Concomitant]
  21. PERCOCET [Concomitant]

REACTIONS (6)
  - RENAL FAILURE ACUTE [None]
  - RENAL FAILURE [None]
  - INJURY [None]
  - PAIN [None]
  - ANXIETY [None]
  - UNEVALUABLE EVENT [None]
